FAERS Safety Report 12780500 (Version 2)
Quarter: 2016Q4

REPORT INFORMATION
  Report Type: Report from Study
  Country: JP (occurrence: JP)
  Receive Date: 20160926
  Receipt Date: 20161014
  Transmission Date: 20170207
  Serious: No
  Sender: FDA-Public Use
  Company Number: JP-VIFOR (INTERNATIONAL) INC.-VIT-2016-05752

PATIENT
  Age: 51 Year
  Sex: Male

DRUGS (14)
  1. SELOKEN [Concomitant]
     Active Substance: METOPROLOL
     Route: 048
  2. BAYASPIRIN [Concomitant]
     Active Substance: ASPIRIN
     Route: 048
  3. NESP [Concomitant]
     Active Substance: DARBEPOETIN ALFA
  4. ROCALTROL [Concomitant]
     Active Substance: CALCITRIOL
     Route: 042
  5. OMEPRAL [Concomitant]
     Active Substance: OMEPRAZOLE
     Route: 048
  6. LIDOCAINE. [Concomitant]
     Active Substance: LIDOCAINE
     Indication: PAIN PROPHYLAXIS
     Route: 062
  7. VELPHORO [Suspect]
     Active Substance: FERRIC OXYHYDROXIDE
     Indication: HYPERPHOSPHATAEMIA
     Route: 048
     Dates: start: 20160519, end: 20160815
  8. FOSRENOL [Concomitant]
     Active Substance: LANTHANUM CARBONATE
     Indication: HYPERPHOSPHATAEMIA
     Route: 048
  9. AMLODIPINE BESILATE [Concomitant]
     Active Substance: AMLODIPINE BESYLATE
     Route: 048
  10. ROCALTROL [Concomitant]
     Active Substance: CALCITRIOL
     Route: 042
     Dates: start: 20160627
  11. REGPARA [Concomitant]
     Active Substance: CINACALCET HYDROCHLORIDE
     Route: 048
  12. CALTAN [Concomitant]
     Active Substance: CALCIUM CARBONATE
     Indication: HYPERPHOSPHATAEMIA
     Route: 048
  13. TENELIA [Concomitant]
     Active Substance: TENELIGLIPTIN
     Route: 048
  14. NESP [Concomitant]
     Active Substance: DARBEPOETIN ALFA
     Dates: start: 20160627, end: 20160725

REACTIONS (2)
  - Blood potassium increased [Recovering/Resolving]
  - Haemoglobin increased [Not Recovered/Not Resolved]

NARRATIVE: CASE EVENT DATE: 20160808
